FAERS Safety Report 19032270 (Version 9)
Quarter: 2021Q3

REPORT INFORMATION
  Report Type: Spontaneous
  Country: JP (occurrence: JP)
  Receive Date: 20210319
  Receipt Date: 20210910
  Transmission Date: 20211014
  Serious: Yes (Hospitalization, Other)
  Sender: FDA-Public Use
  Company Number: JP-BRISTOL-MYERS SQUIBB COMPANY-BMS-2021-025474

PATIENT
  Age: 69 Year
  Sex: Male
  Weight: 60 kg

DRUGS (27)
  1. URSO [Concomitant]
     Active Substance: URSODIOL
     Indication: PRODUCT USED FOR UNKNOWN INDICATION
     Dosage: 100 MILLIGRAM, TID
     Route: 048
  2. MINERAL SUPPLEMENTS [Concomitant]
     Active Substance: MINERALS
     Indication: PRODUCT USED FOR UNKNOWN INDICATION
     Route: 065
  3. YERVOY [Suspect]
     Active Substance: IPILIMUMAB
     Indication: MALIGNANT MELANOMA
     Dosage: 186 MILLIGRAM, ONE TIME DOSE
     Route: 041
     Dates: start: 20201127, end: 20201127
  4. PREDNISOLONE. [Suspect]
     Active Substance: PREDNISOLONE
     Indication: AUTOIMMUNE HAEMOLYTIC ANAEMIA
     Dosage: 60 MILLIGRAM
     Route: 065
     Dates: start: 20210308, end: 20210407
  5. PREDNISOLONE. [Suspect]
     Active Substance: PREDNISOLONE
     Dosage: 30 MILLIGRAM
     Route: 065
     Dates: start: 20210617, end: 20210707
  6. TAKECAB [Concomitant]
     Active Substance: VONOPRAZAN FUMARATE
     Indication: PROPHYLAXIS
     Dosage: 10 MILLIGRAM, QD
     Route: 048
  7. OPDIVO [Suspect]
     Active Substance: NIVOLUMAB
     Dosage: 80 MILLIGRAM, ONE TIME DOSE
     Route: 041
     Dates: start: 20201218, end: 20201218
  8. OPDIVO [Suspect]
     Active Substance: NIVOLUMAB
     Dosage: 80 MILLIGRAM, ONE TIME DOSE
     Route: 041
     Dates: start: 20210108, end: 20210108
  9. PREDNISOLONE. [Suspect]
     Active Substance: PREDNISOLONE
     Dosage: 35 MILLIGRAM
     Route: 065
     Dates: start: 20210527, end: 20210616
  10. PREDNISOLONE. [Suspect]
     Active Substance: PREDNISOLONE
     Dosage: 25 MILLIGRAM
     Route: 065
     Dates: start: 20210708
  11. LOXONIN [Concomitant]
     Active Substance: LOXOPROFEN SODIUM
     Indication: MALIGNANT MELANOMA
     Dosage: 60 MILLIGRAM, TID
     Route: 048
  12. MAGNESIUM OXIDE. [Concomitant]
     Active Substance: MAGNESIUM OXIDE
     Indication: PRODUCT USED FOR UNKNOWN INDICATION
     Route: 065
  13. OPDIVO [Suspect]
     Active Substance: NIVOLUMAB
     Dosage: 80 MILLIGRAM, ONE TIME DOSE
     Route: 041
     Dates: start: 20201127, end: 20201127
  14. GLYCYRON [DL?METHIONINE;GLYCINE;GLYCYRRHIZIC ACID, AMMONIUM SALT] [Concomitant]
     Active Substance: AMMONIUM GLYCYRRHIZATE\GLYCINE\RACEMETHIONINE
     Indication: PRODUCT USED FOR UNKNOWN INDICATION
     Dosage: UNK UNK, TID
     Route: 048
  15. AMLODINE [AMLODIPINE BESILATE] [Concomitant]
     Active Substance: AMLODIPINE BESYLATE
     Indication: PRODUCT USED FOR UNKNOWN INDICATION
     Dosage: 5 MILLIGRAM, QD
     Route: 048
  16. OPDIVO [Suspect]
     Active Substance: NIVOLUMAB
     Indication: MALIGNANT MELANOMA
     Dosage: CUMULATIVE DOSE : 320 MG
     Route: 041
     Dates: start: 201806
  17. YERVOY [Suspect]
     Active Substance: IPILIMUMAB
     Dosage: 186 MILLIGRAM, ONE TIME DOSE
     Route: 041
     Dates: start: 20201218, end: 20201218
  18. YERVOY [Suspect]
     Active Substance: IPILIMUMAB
     Dosage: 186 MILLIGRAM, ONE TIME DOSE
     Route: 041
     Dates: start: 20210129, end: 20210129
  19. PREDNISOLONE. [Suspect]
     Active Substance: PREDNISOLONE
     Dosage: 50 MILLIGRAM
     Route: 065
     Dates: start: 20210408, end: 20210505
  20. PREDNISOLONE. [Suspect]
     Active Substance: PREDNISOLONE
     Dosage: 40 MILLIGRAM
     Route: 065
     Dates: start: 20210506, end: 20210526
  21. OPDIVO [Suspect]
     Active Substance: NIVOLUMAB
     Dosage: 80 MILLIGRAM, ONE TIME DOSE
     Route: 041
     Dates: start: 20210129, end: 20210129
  22. OPDIVO [Suspect]
     Active Substance: NIVOLUMAB
     Dosage: 480 MILLIGRAM, Q3WK
     Route: 041
     Dates: start: 20210219, end: 20210219
  23. YERVOY [Suspect]
     Active Substance: IPILIMUMAB
     Dosage: 186 MILLIGRAM, ONE TIME DOSE
     Route: 041
     Dates: start: 20210108, end: 20210108
  24. LANSOPRAZOLE. [Concomitant]
     Active Substance: LANSOPRAZOLE
     Indication: PRODUCT USED FOR UNKNOWN INDICATION
     Route: 065
  25. OXYCONTIN [Concomitant]
     Active Substance: OXYCODONE HYDROCHLORIDE
     Indication: PRODUCT USED FOR UNKNOWN INDICATION
     Route: 065
  26. FERROMIA [Concomitant]
     Active Substance: SODIUM FERROUS CITRATE
     Indication: MALIGNANT MELANOMA
     Dosage: 50 MILLIGRAM, BID
     Route: 048
  27. MAGMITT [Concomitant]
     Active Substance: MAGNESIUM OXIDE
     Indication: PRODUCT USED FOR UNKNOWN INDICATION
     Dosage: 330 MILLIGRAM, TID
     Route: 048

REACTIONS (6)
  - Aplasia pure red cell [Recovered/Resolved with Sequelae]
  - Cellulitis [Recovered/Resolved]
  - Tumour haemorrhage [Unknown]
  - Autoimmune haemolytic anaemia [Recovered/Resolved with Sequelae]
  - Blood glucose increased [Unknown]
  - Metastases to lung [Unknown]

NARRATIVE: CASE EVENT DATE: 20210303
